FAERS Safety Report 5369380-7 (Version None)
Quarter: 2007Q2

REPORT INFORMATION
  Report Type: 
  Country: None (occurrence: None)
  Receive Date: 20070625
  Receipt Date: 20070419
  Transmission Date: 20071010
  Serious: No
  Sender: FDA-Public Use
  Company Number: US-ASTRAZENECA-2007UW07713

PATIENT
  Age: 20892 Day
  Sex: Female

DRUGS (3)
  1. CRESTOR [Suspect]
     Indication: BLOOD CHOLESTEROL INCREASED
     Route: 048
     Dates: start: 20060101
  2. LEVOXYL [Concomitant]
  3. LOTREL [Concomitant]

REACTIONS (2)
  - BURNING SENSATION [None]
  - FLUSHING [None]
